FAERS Safety Report 12404498 (Version 1)
Quarter: 2016Q2

REPORT INFORMATION
  Report Type: Report from Study
  Country: US (occurrence: US)
  Receive Date: 20160525
  Receipt Date: 20160525
  Transmission Date: 20160815
  Serious: Yes (Other)
  Sender: FDA-Public Use
  Company Number: US-BAXALTA-2016BLT003624

PATIENT

DRUGS (1)
  1. ADVATE [Suspect]
     Active Substance: ANTIHEMOPHILIC FACTOR, HUMAN RECOMBINANT
     Indication: HAEMOPHILIA
     Dosage: UNK.UNK
     Route: 042

REACTIONS (5)
  - Soft tissue haemorrhage [Unknown]
  - Pain [Unknown]
  - Haemarthrosis [Unknown]
  - Haemorrhage [Unknown]
  - Joint destruction [Unknown]
